FAERS Safety Report 19432383 (Version 1)
Quarter: 2021Q2

REPORT INFORMATION
  Report Type: Spontaneous
  Country: US (occurrence: US)
  Receive Date: 20210618
  Receipt Date: 20210618
  Transmission Date: 20210717
  Serious: No
  Sender: FDA-Public Use
  Company Number: US-GE HEALTHCARE LIFE SCIENCES-2021CSU001740

PATIENT
  Age: 51 Year
  Sex: Female

DRUGS (4)
  1. OMNIPAQUE [Suspect]
     Active Substance: IOHEXOL
     Indication: PRODUCT USED FOR UNKNOWN INDICATION
  2. OMNIPAQUE [Suspect]
     Active Substance: IOHEXOL
     Indication: COMPUTERISED TOMOGRAM ABDOMEN
  3. OMNIPAQUE [Suspect]
     Active Substance: IOHEXOL
     Indication: COMPUTERISED TOMOGRAM THORAX
     Dosage: 100 ML, SINGLE
     Route: 042
     Dates: start: 20210319, end: 20210319
  4. OMNIPAQUE [Suspect]
     Active Substance: IOHEXOL
     Indication: COMPUTERISED TOMOGRAM PELVIS

REACTIONS (2)
  - Pruritus [Recovered/Resolved]
  - Urticaria [Recovered/Resolved]

NARRATIVE: CASE EVENT DATE: 20210319
